FAERS Safety Report 4296205-3 (Version None)
Quarter: 2004Q1

REPORT INFORMATION
  Report Type: 
  Country: None (occurrence: None)
  Receive Date: 20040217
  Receipt Date: 20030916
  Transmission Date: 20041129
  Serious: No
  Sender: FDA-Public Use
  Company Number: US-GLAXOSMITHKLINE-A0426146A

PATIENT
  Age: 13 Year
  Sex: Female

DRUGS (2)
  1. LAMICTAL [Suspect]
     Indication: BIPOLAR DISORDER
     Dosage: 112.5MG PER DAY
     Route: 048
     Dates: start: 20030101
  2. OMEGA-3 [Concomitant]

REACTIONS (3)
  - MASTICATION DISORDER [None]
  - PARKINSONIAN REST TREMOR [None]
  - TARDIVE DYSKINESIA [None]
